FAERS Safety Report 17204859 (Version 1)
Quarter: 2019Q4

REPORT INFORMATION
  Report Type: Report from Study
  Country: US (occurrence: US)
  Receive Date: 20191226
  Receipt Date: 20191226
  Transmission Date: 20200122
  Serious: No
  Sender: FDA-Public Use
  Company Number: NVSC2019US079456

PATIENT
  Sex: Male

DRUGS (1)
  1. ILARIS [Suspect]
     Active Substance: CANAKINUMAB
     Indication: PRODUCT USED FOR UNKNOWN INDICATION
     Dosage: 150 MG, Q2W
     Route: 058
     Dates: start: 20140625

REACTIONS (5)
  - Inappropriate schedule of product administration [Unknown]
  - Influenza [Recovered/Resolved]
  - Affective disorder [Recovered/Resolved]
  - Pyrexia [Unknown]
  - Irritability [Recovered/Resolved]
